FAERS Safety Report 8621154-7 (Version None)
Quarter: 2012Q3

REPORT INFORMATION
  Report Type: 
  Country: None (occurrence: None)
  Receive Date: 20120824
  Receipt Date: 20120809
  Transmission Date: 20120928
  Serious: Yes (Death)
  Sender: FDA-Public Use
  Company Number: US-ROCHE-1103039

PATIENT

DRUGS (1)
  1. NUTROPIN AQ [Suspect]
     Indication: GROWTH HORMONE DEFICIENCY
     Route: 058
     Dates: start: 20110201, end: 20120201

REACTIONS (2)
  - FOETAL DEATH [None]
  - MATERNAL EXPOSURE TIMING UNSPECIFIED [None]
